FAERS Safety Report 8157949-6 (Version None)
Quarter: 2012Q1

REPORT INFORMATION
  Report Type: 
  Country: None (occurrence: None)
  Receive Date: 20120222
  Receipt Date: 20120213
  Transmission Date: 20120608
  Serious: Yes (Other)
  Sender: FDA-Public Use
  Company Number: PHFR2011GB04334

PATIENT
  Sex: Female
  Weight: 89 kg

DRUGS (3)
  1. DIAZEPAM [Concomitant]
     Indication: ANXIETY
     Dosage: 2 MG,
     Dates: start: 20090101
  2. AMITRIPTYLINE HCL [Concomitant]
     Indication: DEPRESSION
     Dosage: 50 MG, BID
     Dates: start: 20090101
  3. CLOZARIL [Suspect]
     Indication: SCHIZOPHRENIA
     Route: 048
     Dates: start: 20090814

REACTIONS (6)
  - OTITIS EXTERNA [None]
  - LYMPHADENOPATHY [None]
  - PHARYNGEAL ERYTHEMA [None]
  - OROPHARYNGEAL PAIN [None]
  - UPPER RESPIRATORY TRACT INFECTION [None]
  - MOUTH ULCERATION [None]
